FAERS Safety Report 15501032 (Version 3)
Quarter: 2018Q4

REPORT INFORMATION
  Report Type: Report from Study
  Country: CA (occurrence: CA)
  Receive Date: 20181015
  Receipt Date: 20181112
  Transmission Date: 20190205
  Serious: Yes (Other)
  Sender: FDA-Public Use
  Company Number: CA-JNJFOC-20181013679

PATIENT
  Sex: Male

DRUGS (1)
  1. IMBRUVICA [Suspect]
     Active Substance: IBRUTINIB
     Indication: CHRONIC GRAFT VERSUS HOST DISEASE
     Dosage: STRENGTH = 140 MG
     Route: 048

REACTIONS (12)
  - Haemorrhage subcutaneous [Unknown]
  - Haematoma [Recovering/Resolving]
  - Musculoskeletal stiffness [Unknown]
  - Skin atrophy [Unknown]
  - Basal cell carcinoma [Unknown]
  - Swelling face [Unknown]
  - Stomatitis [Recovered/Resolved]
  - Muscle spasms [Unknown]
  - Fatigue [Unknown]
  - Blister [Unknown]
  - Chapped lips [Unknown]
  - Discomfort [Unknown]
